FAERS Safety Report 11951457 (Version 1)
Quarter: 2016Q1

REPORT INFORMATION
  Report Type: Spontaneous
  Country: CA (occurrence: CA)
  Receive Date: 20160126
  Receipt Date: 20160126
  Transmission Date: 20160526
  Serious: Yes (Other)
  Sender: FDA-Public Use
  Company Number: CA-TEVA-628128ACC

PATIENT
  Age: 5 Year
  Sex: Female

DRUGS (3)
  1. TYLENOL [Concomitant]
     Active Substance: ACETAMINOPHEN
  2. CLINDAMYCIN [Suspect]
     Active Substance: CLINDAMYCIN\CLINDAMYCIN PHOSPHATE
     Indication: PRODUCT USED FOR UNKNOWN INDICATION
     Dosage: 600 MILLIGRAM DAILY;
     Route: 042
  3. CEFOTAXIME [Concomitant]
     Active Substance: CEFOTAXIME SODIUM

REACTIONS (3)
  - Pruritus [Recovering/Resolving]
  - Vomiting [Recovering/Resolving]
  - Crying [Recovering/Resolving]
